FAERS Safety Report 7303942-2 (Version None)
Quarter: 2011Q1

REPORT INFORMATION
  Report Type: 
  Country: None (occurrence: None)
  Receive Date: 20110221
  Receipt Date: 20110216
  Transmission Date: 20110831
  Serious: Yes (Hospitalization)
  Sender: FDA-Public Use
  Company Number: US-ROCHE-760319

PATIENT
  Age: 36 Year
  Sex: Female
  Weight: 115 kg

DRUGS (2)
  1. CELLCEPT [Suspect]
     Route: 048
  2. KLONOPIN [Suspect]
     Dosage: OVERDOSE
     Route: 048

REACTIONS (2)
  - OVERDOSE [None]
  - DYSPHAGIA [None]
